FAERS Safety Report 8480754-8 (Version None)
Quarter: 2012Q3

REPORT INFORMATION
  Report Type: 
  Country: None (occurrence: None)
  Receive Date: 20120702
  Receipt Date: 20120619
  Transmission Date: 20120928
  Serious: Yes (Hospitalization, Other)
  Sender: FDA-Public Use
  Company Number: US-ELI_LILLY_AND_COMPANY-US201206006831

PATIENT
  Sex: Female

DRUGS (3)
  1. HUMULIN R [Suspect]
     Indication: DIABETES MELLITUS
  2. HUMULIN N [Suspect]
     Indication: DIABETES MELLITUS
  3. LANTUS [Concomitant]
     Dosage: 52 U, UNKNOWN

REACTIONS (5)
  - BLOOD GLUCOSE INCREASED [None]
  - FALL [None]
  - WEIGHT DECREASED [None]
  - WRIST FRACTURE [None]
  - HIP FRACTURE [None]
